FAERS Safety Report 6898927-4 (Version None)
Quarter: 2010Q3

REPORT INFORMATION
  Report Type: 
  Country: None (occurrence: None)
  Receive Date: 20100802
  Receipt Date: 20071206
  Transmission Date: 20110219
  Serious: No
  Sender: FDA-Public Use
  Company Number: US-PFIZER INC-2007092305

PATIENT
  Sex: Male

DRUGS (2)
  1. LYRICA [Suspect]
     Indication: PAIN
  2. PAXIL [Concomitant]

REACTIONS (5)
  - ASTHENIA [None]
  - BODY TEMPERATURE DECREASED [None]
  - ILL-DEFINED DISORDER [None]
  - NAUSEA [None]
  - VOMITING [None]
